FAERS Safety Report 8094810-X (Version None)
Quarter: 2012Q1

REPORT INFORMATION
  Report Type: 
  Country: None (occurrence: None)
  Receive Date: 20120129
  Receipt Date: 20111215
  Transmission Date: 20120608
  Serious: No
  Sender: FDA-Public Use
  Company Number: US-ABBOTT-11P-163-0882626-00

PATIENT
  Age: 69 Year
  Sex: Female

DRUGS (8)
  1. CHILDREN'S CHEWABLE VITAMIN [Concomitant]
     Indication: PRODUCT USED FOR UNKNOWN INDICATION
  2. HUMIRA [Suspect]
     Indication: CROHN'S DISEASE
     Dosage: LOADING DOSE
     Dates: start: 20111209
  3. VIVELLE-DOT [Concomitant]
     Indication: PRODUCT USED FOR UNKNOWN INDICATION
     Dosage: ESTROGEN PATCH 0.1: 2 PATCHES PER WEEK
  4. PERCOCET [Concomitant]
     Indication: PAIN
     Dosage: 5/325MG : Q 6HOURS PRN
  5. XALATAN [Concomitant]
     Indication: PRODUCT USED FOR UNKNOWN INDICATION
     Dosage: 1 DROP BOTH EYES AT BEDTIME
  6. VITAMIN B-12 [Concomitant]
     Indication: PRODUCT USED FOR UNKNOWN INDICATION
  7. AMBIEN [Concomitant]
     Indication: INSOMNIA
  8. CALCIUM [Concomitant]
     Indication: PRODUCT USED FOR UNKNOWN INDICATION
     Dosage: 3 QD

REACTIONS (5)
  - NAUSEA [None]
  - DRUG INEFFECTIVE [None]
  - DIARRHOEA [None]
  - DEVICE MALFUNCTION [None]
  - INJECTION SITE PAIN [None]
